FAERS Safety Report 19113881 (Version 2)
Quarter: 2021Q2

REPORT INFORMATION
  Report Type: Spontaneous
  Country: US (occurrence: US)
  Receive Date: 20210408
  Receipt Date: 20210507
  Transmission Date: 20210717
  Serious: No
  Sender: FDA-Public Use
  Company Number: US-BAUSCH-BL-2021-009563

PATIENT
  Age: 57 Year
  Sex: Male
  Weight: 97.61 kg

DRUGS (1)
  1. LUMIFY [Suspect]
     Active Substance: BRIMONIDINE TARTRATE
     Indication: OCULAR HYPERAEMIA
     Dosage: PATIENT STATED HE ONLY USED LUMIFY ONCE
     Route: 047
     Dates: start: 20210313, end: 20210314

REACTIONS (3)
  - Nausea [Recovered/Resolved]
  - Nasal discomfort [Recovered/Resolved]
  - Rhinorrhoea [Recovered/Resolved]

NARRATIVE: CASE EVENT DATE: 20210313
